FAERS Safety Report 6111404-3 (Version None)
Quarter: 2009Q1

REPORT INFORMATION
  Report Type: 
  Country: None (occurrence: None)
  Receive Date: 20090310
  Receipt Date: 20090310
  Transmission Date: 20090719
  Serious: No
  Sender: FDA-Public Use
  Company Number: None

PATIENT
  Age: 32 Year
  Sex: Female
  Weight: 58.514 kg

DRUGS (1)
  1. DEPO-PROVERA [Suspect]
     Indication: CONTRACEPTION
     Dosage: SHOT LAST FOR 3 MONTHS

REACTIONS (4)
  - ACNE [None]
  - ALOPECIA [None]
  - HIRSUTISM [None]
  - HYPERTRICHOSIS [None]
